FAERS Safety Report 7960423-0 (Version None)
Quarter: 2011Q4

REPORT INFORMATION
  Report Type: 
  Country: None (occurrence: None)
  Receive Date: 20111206
  Receipt Date: 20111129
  Transmission Date: 20120403
  Serious: Yes (Other)
  Sender: FDA-Public Use
  Company Number: US-CELGENEUS-163-AB007-11071145

PATIENT
  Sex: Female
  Weight: 106 kg

DRUGS (32)
  1. ABRAXANE [Suspect]
     Dosage: 125 MILLIGRAM/SQ. METER
     Route: 041
     Dates: start: 20110504
  2. ASPIRIN [Concomitant]
     Indication: PROPHYLAXIS
     Route: 048
  3. METFORMIN HCL [Concomitant]
     Route: 048
     Dates: start: 20110408
  4. MSM [Concomitant]
     Route: 048
     Dates: start: 20110511
  5. LOMOTIL [Concomitant]
     Route: 048
     Dates: start: 20110516
  6. CENESTIN [Concomitant]
     Indication: PROPHYLAXIS
     Route: 048
     Dates: start: 19740101
  7. SODIUM CHLORIDE [Concomitant]
     Route: 048
     Dates: start: 20110608, end: 20110608
  8. DEXAMETHASONE [Concomitant]
     Indication: NAUSEA
     Route: 041
     Dates: start: 20110516, end: 20110516
  9. DEXAMETHASONE [Concomitant]
     Route: 041
     Dates: start: 20110608, end: 20110608
  10. KYTRIL [Concomitant]
     Indication: NAUSEA
     Route: 041
     Dates: start: 20110516, end: 20110516
  11. PREDNISONE TAB [Concomitant]
     Indication: FATIGUE
     Route: 048
     Dates: start: 20110601
  12. BYSTOLIC [Concomitant]
     Indication: HYPERTENSION
     Route: 048
     Dates: start: 20100101
  13. CITALOPRAM [Concomitant]
     Indication: ANXIETY
     Route: 048
  14. DIFLUCAN [Concomitant]
     Indication: RASH
     Route: 048
     Dates: start: 20110426, end: 20110502
  15. METHYLPREDNISOLONE ACETATE [Concomitant]
     Indication: FATIGUE
     Route: 048
     Dates: start: 20110601
  16. GEMCITABINE [Suspect]
     Dosage: 1000 MILLIGRAM/SQ. METER
     Route: 065
     Dates: start: 20110504
  17. VITAMIN B-12 [Concomitant]
     Indication: VITAMIN B12 DEFICIENCY
     Route: 048
  18. MELOXICAM [Concomitant]
     Indication: ARTHRITIS
     Route: 048
  19. BENADRYL [Concomitant]
     Indication: PROPHYLAXIS
     Route: 048
     Dates: start: 20110406
  20. ATIVAN [Concomitant]
     Indication: NAUSEA
     Route: 041
     Dates: start: 20110516, end: 20110516
  21. FUROSEMIDE [Concomitant]
     Indication: PROPHYLAXIS
     Route: 048
  22. SODIUM CHLORIDE [Concomitant]
     Indication: DEHYDRATION
     Route: 048
     Dates: start: 20110516, end: 20110516
  23. CREON [Concomitant]
     Route: 048
     Dates: start: 20110520, end: 20110601
  24. COUMADIN [Concomitant]
     Route: 048
     Dates: start: 20110525
  25. GEMCITABINE [Suspect]
     Dosage: 1000 MILLIGRAM/SQ. METER
     Route: 065
     Dates: start: 20110223
  26. VERAMYST [Concomitant]
     Indication: SEASONAL ALLERGY
     Route: 048
  27. METOCLOPRAMIDE [Concomitant]
     Route: 048
  28. DIFLUCAN [Concomitant]
  29. LOVENOX [Concomitant]
     Route: 058
     Dates: start: 20110525, end: 20110531
  30. ABRAXANE [Suspect]
     Dosage: 125 MILLIGRAM/SQ. METER
     Route: 041
     Dates: start: 20110223
  31. BYSTOLIC [Concomitant]
     Indication: TACHYCARDIA
  32. SANDOSTATIN [Concomitant]
     Route: 041
     Dates: start: 20110516, end: 20110516

REACTIONS (1)
  - UROSEPSIS [None]
